FAERS Safety Report 7267280-9 (Version None)
Quarter: 2011Q1

REPORT INFORMATION
  Report Type: 
  Country: None (occurrence: None)
  Receive Date: 20110201
  Receipt Date: 20110125
  Transmission Date: 20110831
  Serious: Yes (Death, Hospitalization, Other)
  Sender: FDA-Public Use
  Company Number: US-SANOFI-AVENTIS-2010SA076867

PATIENT
  Age: 79 Year
  Sex: Male
  Weight: 65.54 kg

DRUGS (16)
  1. ZANTAC [Concomitant]
  2. IMDUR [Concomitant]
  3. JEVTANA KIT [Suspect]
     Indication: PROSTATE CANCER
     Dosage: (TOTAL DOSE 40 MG)
     Route: 041
     Dates: start: 20100924, end: 20100924
  4. DIGOXIN [Concomitant]
  5. CARDIZEM [Concomitant]
  6. ASPIRIN [Concomitant]
  7. ALBUTEROL [Concomitant]
  8. SIMVASTATIN [Concomitant]
  9. LISINOPRIL [Concomitant]
  10. JEVTANA KIT [Suspect]
     Dosage: (TOTAL DOSE 40 MG)
     Route: 041
     Dates: start: 20101021, end: 20101021
  11. AMARYL [Concomitant]
  12. COREG [Concomitant]
  13. PREDNISONE [Concomitant]
  14. TRIAMTERENE [Concomitant]
  15. ALLOPURINOL [Concomitant]
     Indication: GOUT
  16. FLUTICASONE PROPIONATE [Concomitant]

REACTIONS (6)
  - ATRIAL FIBRILLATION [None]
  - DEATH [None]
  - RENAL FAILURE [None]
  - RENAL FAILURE ACUTE [None]
  - ATRIAL FLUTTER [None]
  - ARRHYTHMIA [None]
